FAERS Safety Report 9369947 (Version 2)
Quarter: 2013Q3

REPORT INFORMATION
  Report Type: Spontaneous
  Country: US (occurrence: US)
  Receive Date: 20130626
  Receipt Date: 20130719
  Transmission Date: 20140515
  Serious: Yes (Hospitalization, Other)
  Sender: FDA-Public Use
  Company Number: US-PFIZER INC-2013189425

PATIENT
  Age: 62 Year
  Sex: Female
  Weight: 63.49 kg

DRUGS (4)
  1. LYRICA [Suspect]
     Indication: FIBROMYALGIA
     Dosage: 75 MG, 3X/DAY
  2. LOPRESSOR [Concomitant]
     Indication: HYPERTENSION
     Dosage: UNK
  3. AZOR [Concomitant]
     Indication: HYPERTENSION
     Dosage: UNK
  4. NEXIUM [Concomitant]
     Indication: HYPERCHLORHYDRIA
     Dosage: UNK

REACTIONS (5)
  - Pneumonia [Unknown]
  - Vomiting [Unknown]
  - Dehydration [Unknown]
  - Amnesia [Unknown]
  - Fall [Unknown]
